FAERS Safety Report 15010639 (Version 1)
Quarter: 2018Q2

REPORT INFORMATION
  Report Type: Spontaneous
  Country: US (occurrence: US)
  Receive Date: 20180614
  Receipt Date: 20180614
  Transmission Date: 20180711
  Serious: No
  Sender: FDA-Public Use
  Company Number: US-WEST-WARD PHARMACEUTICALS CORP.-US-H14001-18-02338

PATIENT
  Age: 45 Year
  Sex: Female
  Weight: 99 kg

DRUGS (2)
  1. PREDNISONE. [Suspect]
     Active Substance: PREDNISONE
     Indication: DRUG HYPERSENSITIVITY
     Route: 048
     Dates: start: 20180312
  2. CLINDAMYCIN. [Suspect]
     Active Substance: CLINDAMYCIN
     Indication: INFECTION
     Route: 065

REACTIONS (7)
  - Migraine [Not Recovered/Not Resolved]
  - Dizziness [Unknown]
  - Throat tightness [Not Recovered/Not Resolved]
  - Nausea [Unknown]
  - Fall [Unknown]
  - Rash macular [Not Recovered/Not Resolved]
  - Erythema [Recovering/Resolving]

NARRATIVE: CASE EVENT DATE: 20180315
